FAERS Safety Report 25805290 (Version 3)
Quarter: 2025Q4

REPORT INFORMATION
  Report Type: Spontaneous
  Country: JP (occurrence: JP)
  Receive Date: 20250916
  Receipt Date: 20251212
  Transmission Date: 20260117
  Serious: Yes (Hospitalization, Other)
  Sender: BRISTOL-MYERS SQUIBB COMPANY
  Company Number: JP-BRISTOL-MYERS SQUIBB COMPANY-2025-123929

PATIENT
  Age: 8 Decade
  Sex: Female

DRUGS (2)
  1. YERVOY [Suspect]
     Active Substance: IPILIMUMAB
     Indication: Oesophageal squamous cell carcinoma
     Route: 041
  2. OPDIVO [Suspect]
     Active Substance: NIVOLUMAB
     Indication: Oesophageal squamous cell carcinoma

REACTIONS (8)
  - Rash [Unknown]
  - Adrenal insufficiency [Unknown]
  - Cytokine release syndrome [Recovering/Resolving]
  - Arthralgia [Unknown]
  - Movement disorder [Unknown]
  - Subcutaneous abscess [Unknown]
  - Herpes zoster [Unknown]
  - Infection [Unknown]
